FAERS Safety Report 15654099 (Version 1)
Quarter: 2018Q4

REPORT INFORMATION
  Report Type: Spontaneous
  Country: US (occurrence: US)
  Receive Date: 20181125
  Receipt Date: 20181125
  Transmission Date: 20190205
  Serious: Yes (Other)
  Sender: FDA-Public Use
  Company Number: None

PATIENT
  Age: 40 Year
  Sex: Male
  Weight: 54 kg

DRUGS (9)
  1. SCOPOLAMINE PATCH [Concomitant]
     Active Substance: SCOPOLAMINE
  2. BENZTROPINE 0.5MG [Concomitant]
  3. SENNA 25.8MG [Concomitant]
  4. LAMOTRIGINE 300MG [Concomitant]
     Active Substance: LAMOTRIGINE
  5. DENOSUMAB 60MG SUB CUTA [Concomitant]
  6. SORBITOL 50ML [Concomitant]
  7. RAMIPRIL. [Suspect]
     Active Substance: RAMIPRIL
     Indication: PERIPHERAL VASCULAR DISORDER
     Dosage: ?          OTHER ROUTE:GASTROSTOMY TUBE?
  8. LANSOPRAZOLE 30MG [Concomitant]
     Active Substance: LANSOPRAZOLE
  9. LEVETIRACETAM 2500MG [Concomitant]

REACTIONS (2)
  - Cough [None]
  - Respiratory distress [None]

NARRATIVE: CASE EVENT DATE: 20181105
